FAERS Safety Report 21925473 (Version 1)
Quarter: 2023Q1

REPORT INFORMATION
  Report Type: Spontaneous
  Country: US (occurrence: US)
  Receive Date: 20230130
  Receipt Date: 20230130
  Transmission Date: 20230418
  Serious: Yes (Other)
  Sender: FDA-Public Use
  Company Number: US-ENDO PHARMACEUTICALS INC-2023-000315

PATIENT
  Age: 53 Year
  Sex: Male

DRUGS (5)
  1. AVEED [Interacting]
     Active Substance: TESTOSTERONE UNDECANOATE
     Indication: Product used for unknown indication
     Dosage: UNK UNKNOWN, UNKNOWN
     Route: 030
  2. WARFARIN [Interacting]
     Active Substance: WARFARIN
     Indication: Anticoagulant therapy
     Dosage: 16 MG, UNKNOWN (DAY ZERO)
     Route: 065
  3. WARFARIN [Interacting]
     Active Substance: WARFARIN
     Dosage: 6 MG, UNKNOWN (DAY 11)
     Route: 065
  4. WARFARIN [Interacting]
     Active Substance: WARFARIN
     Dosage: 8 MG, UNKNOWN (DAY 21)
     Route: 065
  5. WARFARIN [Interacting]
     Active Substance: WARFARIN
     Dosage: 13 MG, UNKNOWN (DAY 29)
     Route: 065

REACTIONS (2)
  - Drug interaction [Recovering/Resolving]
  - International normalised ratio increased [Unknown]
